FAERS Safety Report 6488222-X (Version None)
Quarter: 2009Q4

REPORT INFORMATION
  Report Type: 
  Country: None (occurrence: None)
  Receive Date: 20091210
  Receipt Date: 20091203
  Transmission Date: 20100525
  Serious: Yes (Disabling)
  Sender: FDA-Public Use
  Company Number: B0610626A

PATIENT
  Age: 64 Year
  Sex: Male

DRUGS (4)
  1. DIGOXIN [Suspect]
     Dates: start: 20091020
  2. LIPITOR [Suspect]
  3. METFORMIN HCL [Suspect]
  4. WARFARIN SODIUM [Suspect]

REACTIONS (1)
  - MYALGIA [None]
